FAERS Safety Report 8024382-7 (Version None)
Quarter: 2012Q1

REPORT INFORMATION
  Report Type: 
  Country: None (occurrence: None)
  Receive Date: 20120105
  Receipt Date: 20120105
  Transmission Date: 20120608
  Serious: Yes (Life-Threatening, Hospitalization, Other)
  Sender: FDA-Public Use
  Company Number: None

PATIENT
  Age: 45 Year
  Sex: Female
  Weight: 103.5 kg

DRUGS (18)
  1. FERATAB FERROUS SULFATE [Concomitant]
     Route: 048
  2. ZOFRAN [Concomitant]
     Route: 048
  3. ZOFRAN [Concomitant]
     Route: 048
  4. DILAUDID [Concomitant]
     Route: 048
  5. ALLEGRA 24 HOUR [Concomitant]
     Route: 048
  6. ZOFRAN [Concomitant]
     Route: 042
  7. POLYETHYLENE GLYCOL [Concomitant]
     Route: 048
  8. ATIVAN [Concomitant]
     Route: 048
  9. ZOMETA [Concomitant]
     Route: 042
  10. OXYCONTIN [Concomitant]
     Route: 048
  11. CELEBREX [Concomitant]
     Route: 048
  12. DOCUSATE SODIUM [Concomitant]
     Route: 048
  13. PACLITAXEL [Suspect]
  14. MULTI-VITAMIN [Concomitant]
     Route: 048
  15. IBUPROFEN [Concomitant]
     Route: 048
  16. ACETAMINOPHEN [Concomitant]
     Route: 048
  17. PROVIGIL [Concomitant]
     Route: 048
  18. SYNTHROID [Concomitant]
     Route: 048

REACTIONS (3)
  - RESPIRATORY DISTRESS [None]
  - PLATELET COUNT DECREASED [None]
  - HYPERSENSITIVITY [None]
